FAERS Safety Report 7403865-4 (Version None)
Quarter: 2011Q2

REPORT INFORMATION
  Report Type: 
  Country: None (occurrence: None)
  Receive Date: 20110408
  Receipt Date: 20110405
  Transmission Date: 20111010
  Serious: Yes (Other)
  Sender: FDA-Public Use
  Company Number: US-PFIZER INC-US-WYE-H16892410

PATIENT
  Sex: Male

DRUGS (2)
  1. CIPROFLOXACIN [Suspect]
  2. CORDARONE [Suspect]
     Dosage: UNK
     Route: 048

REACTIONS (2)
  - ILL-DEFINED DISORDER [None]
  - URINARY TRACT INFECTION [None]
